FAERS Safety Report 15311734 (Version 18)
Quarter: 2020Q4

REPORT INFORMATION
  Report Type: Spontaneous
  Country: DE (occurrence: DE)
  Receive Date: 20180823
  Receipt Date: 20201111
  Transmission Date: 20210113
  Serious: Yes (Hospitalization, Other)
  Sender: FDA-Public Use
  Company Number: PHHY2018DE074986

PATIENT
  Age: 78 Year
  Sex: Female
  Weight: 91 kg

DRUGS (50)
  1. COBIMETINIB. [Suspect]
     Active Substance: COBIMETINIB
     Dosage: 20 MG, 0.33 PER DAY
     Route: 048
     Dates: start: 201803
  2. VEMURAFENIB. [Suspect]
     Active Substance: VEMURAFENIB
     Dosage: 480 MG, HALF A DAY
     Route: 048
     Dates: start: 20180116
  3. VEMURAFENIB. [Suspect]
     Active Substance: VEMURAFENIB
     Dosage: 960 MG, HALF A DAY
     Route: 048
     Dates: start: 20180116
  4. RAMIPRIL. [Concomitant]
     Active Substance: RAMIPRIL
     Indication: HYPERTENSION
     Dosage: 10 MG, QD
     Route: 048
     Dates: start: 201709, end: 20190403
  5. NEPRESOL [Concomitant]
     Indication: HYPERTENSION
     Dosage: 12.5 MG, QD
     Route: 048
  6. PANTOPRAZOLE [Concomitant]
     Active Substance: PANTOPRAZOLE
     Dosage: 10 MG, QD
     Route: 048
     Dates: start: 20171221, end: 201801
  7. METOPROLOLSUCCINAAT [Concomitant]
     Active Substance: METOPROLOL SUCCINATE
     Indication: HYPERTENSION
     Dosage: 95 MG, QD
     Route: 048
     Dates: start: 201404
  8. VALSARTAN. [Concomitant]
     Active Substance: VALSARTAN
     Indication: HYPERTENSION
     Dosage: 52 MG, QD
     Route: 048
     Dates: start: 20190410
  9. DEXAMETHASONE. [Concomitant]
     Active Substance: DEXAMETHASONE
     Dosage: 8 MG, QD (0.5 A DAY)
     Route: 048
     Dates: start: 20190922, end: 20190922
  10. VEMURAFENIB. [Suspect]
     Active Substance: VEMURAFENIB
     Dosage: 720 MG, HALF A DAY
     Route: 048
     Dates: start: 20180113, end: 20180116
  11. VEMURAFENIB. [Suspect]
     Active Substance: VEMURAFENIB
     Dosage: 960 MG, HALF A DAY
     Route: 048
     Dates: start: 20180703, end: 20190115
  12. PANTOPRAZOLE [Concomitant]
     Active Substance: PANTOPRAZOLE
     Dosage: 80 MG, QD
     Route: 048
     Dates: start: 20171221, end: 201801
  13. SACUBITRIL [Concomitant]
     Active Substance: SACUBITRIL
     Indication: HYPERTENSION
     Dosage: 48 MG, QD
     Route: 048
     Dates: start: 20190410
  14. DEXAMETHASONE. [Concomitant]
     Active Substance: DEXAMETHASONE
     Dosage: 2 MG, QD
     Route: 048
     Dates: start: 20191113
  15. HUMALOG [Concomitant]
     Active Substance: INSULIN LISPRO
     Indication: DIABETES MELLITUS
     Dosage: UNK
     Route: 058
     Dates: start: 20190404
  16. PANTOZOL [Concomitant]
     Active Substance: PANTOPRAZOLE SODIUM
     Indication: PRODUCT USED FOR UNKNOWN INDICATION
     Dosage: 40 MG, QD
     Route: 048
     Dates: start: 20180207
  17. COBIMETINIB. [Suspect]
     Active Substance: COBIMETINIB
     Dosage: UNK
     Route: 048
     Dates: start: 20190527, end: 20190531
  18. VEMURAFENIB. [Suspect]
     Active Substance: VEMURAFENIB
     Dosage: 480 MG, HALF A DAY
     Route: 048
     Dates: start: 20180121
  19. DEXAMETHASONE. [Concomitant]
     Active Substance: DEXAMETHASONE
     Dosage: 24 MG, QD (0.33 A DAY)
     Route: 048
     Dates: start: 20190923
  20. DIHYDRALAZINE [Concomitant]
     Active Substance: DIHYDRALAZINE
     Indication: HYPERTENSION
     Dosage: 50 MG, QD
     Route: 048
     Dates: start: 20190410
  21. COBIMETINIB. [Suspect]
     Active Substance: COBIMETINIB
     Dosage: 20 MG, QD
     Route: 048
     Dates: start: 20180116
  22. KALINOR [Concomitant]
     Indication: PROPHYLAXIS
     Dosage: 1200 MG, QD (SLOW RELEASE)
     Route: 048
     Dates: start: 201709
  23. SACUBITRIL [Concomitant]
     Active Substance: SACUBITRIL
     Indication: HYPERTENSION
     Dosage: 48 MG, QD
     Route: 048
     Dates: start: 20190404
  24. SACUBITRIL [Concomitant]
     Active Substance: SACUBITRIL
     Indication: HYPERTENSION
  25. VALSARTAN. [Concomitant]
     Active Substance: VALSARTAN
     Indication: HYPERTENSION
  26. DOXYCYCLINE. [Suspect]
     Active Substance: DOXYCYCLINE
     Dosage: 400 MG, QD
     Route: 048
  27. VEMURAFENIB. [Suspect]
     Active Substance: VEMURAFENIB
     Indication: MALIGNANT MELANOMA
     Dosage: 960 MG, HALF A DAY
     Route: 048
     Dates: start: 20180103, end: 20180109
  28. VEMURAFENIB. [Suspect]
     Active Substance: VEMURAFENIB
     Dosage: 960 MG, HALF A DAY
     Route: 048
     Dates: start: 20180226
  29. INSUMAN RAPID [Concomitant]
     Active Substance: INSULIN HUMAN
     Indication: TYPE 2 DIABETES MELLITUS
     Dosage: UNK
     Route: 058
  30. TORASEMID [Concomitant]
     Active Substance: TORSEMIDE
     Indication: HYPERTENSION
     Dosage: 20 MG, QD
     Route: 048
     Dates: end: 20190403
  31. ATORVASTATIN [Concomitant]
     Active Substance: ATORVASTATIN
     Indication: CARDIOVASCULAR EVENT PROPHYLAXIS
     Dosage: 0.33 DAY
     Route: 058
     Dates: start: 20190410
  32. DEXAMETHASONE. [Concomitant]
     Active Substance: DEXAMETHASONE
     Indication: MALIGNANT MELANOMA
     Dosage: 36 MG, QD  (0.33 A DAY)
     Route: 048
     Dates: start: 20190921, end: 20191001
  33. HUMALOG [Concomitant]
     Active Substance: INSULIN LISPRO
     Indication: TYPE 2 DIABETES MELLITUS
     Dosage: QD
     Route: 058
     Dates: start: 20190410
  34. DOXYCYCLINE. [Suspect]
     Active Substance: DOXYCYCLINE
     Indication: BORRELIA INFECTION
     Dosage: 200 MG, QD
     Route: 048
     Dates: start: 20180529, end: 20180619
  35. COBIMETINIB. [Suspect]
     Active Substance: COBIMETINIB
     Dosage: 40 MG, QD
     Route: 048
     Dates: start: 20180113, end: 20180116
  36. COBIMETINIB. [Suspect]
     Active Substance: COBIMETINIB
     Dosage: UNK
     Route: 048
     Dates: end: 20190729
  37. PANTOPRAZOLE [Concomitant]
     Active Substance: PANTOPRAZOLE
     Indication: PROPHYLAXIS
     Dosage: 80 MG, QD
     Route: 048
     Dates: start: 201404
  38. LANTUS [Concomitant]
     Active Substance: INSULIN GLARGINE
     Indication: TYPE 2 DIABETES MELLITUS
     Dosage: 32 IU, QD
     Route: 058
  39. DEXAMETHASONE. [Concomitant]
     Active Substance: DEXAMETHASONE
     Dosage: 16 MG, QD
     Route: 048
     Dates: start: 20191002, end: 20191008
  40. VEMURAFENIB. [Suspect]
     Active Substance: VEMURAFENIB
     Dosage: 960 MG, HALF A DAY
     Route: 048
     Dates: start: 20180110
  41. VALSARTAN. [Concomitant]
     Active Substance: VALSARTAN
     Indication: HYPERTENSION
     Dosage: 52 MG, QD (0.5 A DAY)
     Route: 048
     Dates: start: 20190404
  42. ATORVASTATIN [Concomitant]
     Active Substance: ATORVASTATIN
     Indication: CARDIOVASCULAR EVENT PROPHYLAXIS
     Dosage: 40 MG, QD
     Route: 048
     Dates: start: 20190404
  43. COBIMETINIB. [Suspect]
     Active Substance: COBIMETINIB
     Indication: MALIGNANT MELANOMA
     Dosage: 60 MG, QD
     Route: 048
     Dates: start: 20180103, end: 20180109
  44. COBIMETINIB. [Suspect]
     Active Substance: COBIMETINIB
     Dosage: 20 MG, QD
     Route: 048
     Dates: start: 20180121
  45. VEMURAFENIB. [Suspect]
     Active Substance: VEMURAFENIB
     Dosage: UNK
     Route: 048
     Dates: end: 20190729
  46. AMLODIPINE [Concomitant]
     Active Substance: AMLODIPINE BESYLATE
     Indication: HYPERTENSION
     Dosage: 5 MG, QD
     Route: 048
     Dates: start: 201404, end: 20180410
  47. AMLODIPINE [Concomitant]
     Active Substance: AMLODIPINE BESYLATE
     Dosage: 5 MG, QD
     Route: 048
     Dates: end: 20190403
  48. PRADAXA [Concomitant]
     Active Substance: DABIGATRAN ETEXILATE MESYLATE
     Indication: ATRIAL FIBRILLATION
     Dosage: 220 MG, QD
     Route: 048
     Dates: start: 201404
  49. HYDROCHLOROTHIAZIDE. [Concomitant]
     Active Substance: HYDROCHLOROTHIAZIDE
     Indication: HYPERTENSION
     Dosage: 25 MG, QD
     Route: 048
     Dates: start: 201709, end: 201712
  50. DEXAMETHASONE. [Concomitant]
     Active Substance: DEXAMETHASONE
     Dosage: 4 MG, QD
     Route: 048
     Dates: start: 20191009, end: 20191012

REACTIONS (45)
  - Decreased appetite [Recovered/Resolved]
  - Epilepsy [Not Recovered/Not Resolved]
  - Illness [Recovered/Resolved]
  - Cough [Recovered/Resolved]
  - Solar dermatitis [Recovered/Resolved]
  - Hypertensive heart disease [Not Recovered/Not Resolved]
  - Cardiac failure [Not Recovered/Not Resolved]
  - Borrelia infection [Recovered/Resolved]
  - Chronic gastritis [Unknown]
  - Hyperthyroidism [Recovering/Resolving]
  - Abdominal pain [Recovered/Resolved]
  - Gastrooesophageal reflux disease [Not Recovered/Not Resolved]
  - Gastroenteritis norovirus [Recovered/Resolved]
  - Musculoskeletal chest pain [Recovered/Resolved]
  - Diabetes mellitus [Not Recovered/Not Resolved]
  - Urinary tract infection [Recovered/Resolved]
  - Urinary tract infection [Recovered/Resolved]
  - Photosensitivity reaction [Recovered/Resolved]
  - Hypoacusis [Not Recovered/Not Resolved]
  - Bundle branch block right [Unknown]
  - Blood lactate dehydrogenase increased [Recovered/Resolved]
  - Diarrhoea [Not Recovered/Not Resolved]
  - Diarrhoea [Recovered/Resolved]
  - Diarrhoea [Recovered/Resolved]
  - Arrhythmia [Recovering/Resolving]
  - Diarrhoea [Recovered/Resolved]
  - Decreased appetite [Not Recovered/Not Resolved]
  - Visual impairment [Not Recovered/Not Resolved]
  - Fatigue [Recovering/Resolving]
  - Goitre [Not Recovered/Not Resolved]
  - Solar dermatitis [Recovered/Resolved]
  - Angioedema [Recovered/Resolved]
  - Renal failure [Not Recovered/Not Resolved]
  - Hypertension [Recovered/Resolved with Sequelae]
  - Blood lactate dehydrogenase increased [Not Recovered/Not Resolved]
  - Nausea [Recovered/Resolved]
  - Photosensitivity reaction [Recovering/Resolving]
  - Pain [Recovered/Resolved]
  - Eyelid oedema [Recovered/Resolved]
  - Urosepsis [Recovered/Resolved]
  - Left ventricular failure [Not Recovered/Not Resolved]
  - Borrelia infection [Recovered/Resolved]
  - Back pain [Recovered/Resolved]
  - Alopecia [Recovered/Resolved]
  - Rash [Recovered/Resolved]

NARRATIVE: CASE EVENT DATE: 20180108
